FAERS Safety Report 4652184-8 (Version None)
Quarter: 2005Q2

REPORT INFORMATION
  Report Type: 
  Country: None (occurrence: None)
  Receive Date: 20050504
  Receipt Date: 20050422
  Transmission Date: 20051028
  Serious: Yes (Death)
  Sender: FDA-Public Use
  Company Number: IT-BRISTOL-MYERS SQUIBB COMPANY-12947198

PATIENT
  Age: 46 Year
  Sex: Male

DRUGS (3)
  1. ABILIFY [Suspect]
  2. ANTIPSYCHOTIC [Concomitant]
  3. BENZODIAZEPINES [Concomitant]

REACTIONS (1)
  - PANCREATITIS [None]
